FAERS Safety Report 7868827-1 (Version None)
Quarter: 2011Q4

REPORT INFORMATION
  Report Type: 
  Country: None (occurrence: None)
  Receive Date: 20111025
  Receipt Date: 20111010
  Transmission Date: 20120403
  Serious: Yes (Hospitalization, Other)
  Sender: FDA-Public Use
  Company Number: 2011SP048056

PATIENT
  Age: 53 Year
  Sex: Male

DRUGS (3)
  1. RIBAVIRIN [Suspect]
     Indication: HEPATITIS C
  2. METHADONE HCL [Concomitant]
  3. PEG-INTRON [Suspect]
     Indication: HEPATITIS C
     Dates: end: 20110907

REACTIONS (12)
  - DIARRHOEA [None]
  - BACK PAIN [None]
  - INFLUENZA [None]
  - SOMNOLENCE [None]
  - MUSCLE TIGHTNESS [None]
  - PAIN [None]
  - NAUSEA [None]
  - MOOD SWINGS [None]
  - SKIN EXFOLIATION [None]
  - ANAEMIA [None]
  - CRYING [None]
  - LYMPHOCYTE COUNT DECREASED [None]
